FAERS Safety Report 8001334-4 (Version None)
Quarter: 2011Q4

REPORT INFORMATION
  Report Type: 
  Country: None (occurrence: None)
  Receive Date: 20111222
  Receipt Date: 20111214
  Transmission Date: 20120403
  Serious: Yes (Hospitalization)
  Sender: FDA-Public Use
  Company Number: US-BAYER-2011-034985

PATIENT
  Age: 22 Year
  Sex: Female
  Weight: 72 kg

DRUGS (7)
  1. YAZ [Suspect]
     Indication: CONTRACEPTION
     Dosage: UNK
     Dates: start: 20090201, end: 20090401
  2. YAZ [Suspect]
     Indication: PREMENSTRUAL SYNDROME
  3. TOPROL-XL [Concomitant]
     Indication: PALPITATIONS
     Dosage: 100 MG, EVERYDAY
     Route: 048
     Dates: start: 20050901
  4. MULTI-VITAMINS [Concomitant]
     Route: 048
  5. NASACORT [Concomitant]
     Dosage: 2 SPRAYS EACH NOSTRIL
  6. SYNTHROID [Concomitant]
     Indication: HYPOTHYROIDISM
     Dosage: 50 ?G, EVERY DAY
     Route: 048
     Dates: start: 20050801
  7. IBUPROFEN (ADVIL) [Concomitant]
     Dosage: UNK UNK, PRN AS NEEDED
     Dates: start: 20090401

REACTIONS (8)
  - PELVIC VENOUS THROMBOSIS [None]
  - ANHEDONIA [None]
  - PULMONARY EMBOLISM [None]
  - DEEP VEIN THROMBOSIS [None]
  - INJURY [None]
  - EMOTIONAL DISTRESS [None]
  - PAIN [None]
  - ANXIETY [None]
